FAERS Safety Report 10355213 (Version 1)
Quarter: 2014Q3

REPORT INFORMATION
  Report Type: Spontaneous
  Country: FR (occurrence: FR)
  Receive Date: 20140731
  Receipt Date: 20140731
  Transmission Date: 20150326
  Serious: Yes (Hospitalization)
  Sender: FDA-Public Use
  Company Number: FR-PFIZER INC-2014207688

PATIENT
  Age: 70 Year
  Sex: Female

DRUGS (5)
  1. NEORECORMON [Concomitant]
     Active Substance: ERYTHROPOIETIN
  2. SUTENT [Suspect]
     Active Substance: SUNITINIB MALATE
     Dosage: 37.5 MG, ONCE DAILY 2 WEEKS ON, 1 WEEK OFF
     Route: 048
     Dates: start: 20140219, end: 201403
  3. INNOHEP [Concomitant]
     Active Substance: TINZAPARIN SODIUM
  4. LEVOTHYROX [Concomitant]
     Active Substance: LEVOTHYROXINE
  5. SUTENT [Suspect]
     Active Substance: SUNITINIB MALATE
     Indication: METASTATIC RENAL CELL CARCINOMA
     Dosage: 37.5 MG, 1X/DAY
     Route: 048
     Dates: start: 20140116, end: 20140122

REACTIONS (1)
  - Congestive cardiomyopathy [Recovered/Resolved]

NARRATIVE: CASE EVENT DATE: 20140122
